FAERS Safety Report 21083406 (Version 1)
Quarter: 2022Q3

REPORT INFORMATION
  Report Type: Spontaneous
  Country: US (occurrence: None)
  Receive Date: 20220714
  Receipt Date: 20220714
  Transmission Date: 20221026
  Serious: No
  Sender: FDA-Public Use
  Company Number: None

PATIENT
  Sex: Female

DRUGS (1)
  1. VUMERITY [Suspect]
     Active Substance: DIROXIMEL FUMARATE
     Indication: Multiple sclerosis
     Dosage: FREQUENCY : TWICE A DAY;?
     Route: 048
     Dates: start: 202202

REACTIONS (18)
  - SARS-CoV-2 test positive [None]
  - Nasopharyngitis [None]
  - Nasal congestion [None]
  - Feeling abnormal [None]
  - Ageusia [None]
  - Dyspnoea [None]
  - Headache [None]
  - Asthenia [None]
  - Fatigue [None]
  - Somnolence [None]
  - Oxygen saturation decreased [None]
  - Abdominal pain upper [None]
  - Nausea [None]
  - Dizziness [None]
  - Myalgia [None]
  - Back pain [None]
  - Arthralgia [None]
  - Diarrhoea [None]
